FAERS Safety Report 6405286-X (Version None)
Quarter: 2009Q4

REPORT INFORMATION
  Report Type: 
  Country: None (occurrence: None)
  Receive Date: 20091019
  Receipt Date: 20091008
  Transmission Date: 20100525
  Serious: Yes (Other)
  Sender: FDA-Public Use
  Company Number: DE-JNJFOC-20091001993

PATIENT
  Age: 38 Year
  Sex: Male
  Weight: 103 kg

DRUGS (8)
  1. REMICADE [Suspect]
     Dosage: EVERY 4-6 WEEKS
     Route: 042
     Dates: start: 20090408, end: 20090728
  2. REMICADE [Suspect]
     Indication: POLYARTHRITIS
     Dosage: EVERY 4-6 WEEKS
     Route: 042
     Dates: start: 20090408, end: 20090728
  3. PREDNISOLONE [Concomitant]
     Indication: POLYARTHRITIS
     Route: 048
  4. METHOTREXATE [Concomitant]
     Indication: POLYARTHRITIS
     Route: 030
  5. FOLIC ACID [Concomitant]
     Indication: POLYARTHRITIS
  6. INDOMETHACIN [Concomitant]
     Indication: POLYARTHRITIS
     Route: 048
  7. SULFASALAZIN [Concomitant]
     Indication: POLYARTHRITIS
     Route: 048
  8. PANTOPRAZOL [Concomitant]
     Indication: GASTROINTESTINAL DISORDER THERAPY
     Route: 048

REACTIONS (1)
  - TESTICULAR SEMINOMA (PURE) [None]
